FAERS Safety Report 6314267-6 (Version None)
Quarter: 2009Q3

REPORT INFORMATION
  Report Type: 
  Country: None (occurrence: None)
  Receive Date: 20090817
  Receipt Date: 20090803
  Transmission Date: 20100115
  Serious: Yes (Death)
  Sender: FDA-Public Use
  Company Number: 2009AL002546

PATIENT
  Age: 62 Year
  Sex: Male

DRUGS (23)
  1. DIGOXIN [Suspect]
     Dosage: 0.125MG, DAILY, PO
     Route: 048
  2. AMBIEN [Concomitant]
  3. APSIRIN [Concomitant]
  4. GABAPENTIN [Concomitant]
  5. NITROGLYCERIN [Concomitant]
  6. CLOTRIMAZOLE [Concomitant]
  7. LISINOPRIL [Concomitant]
  8. PREDNISONE TAB [Concomitant]
  9. NEXIUM [Concomitant]
  10. HYDROCHLOROQUINE [Concomitant]
  11. FUROSEMIDE [Concomitant]
  12. PROVENTIL-HFA [Concomitant]
  13. ALPRAZOLAM [Concomitant]
  14. GABAPENTIN [Concomitant]
  15. BONIVA [Concomitant]
  16. FLUCONAZOLE [Concomitant]
  17. AMOXICILLIN [Concomitant]
  18. TEMAZEPAM [Concomitant]
  19. OMEPRAZOLE [Concomitant]
  20. ZOLPIDEM [Concomitant]
  21. HYOSCYAMINE [Concomitant]
  22. CARVEDILOL [Concomitant]
  23. COREG [Concomitant]

REACTIONS (7)
  - ARTHRALGIA [None]
  - BONE PAIN [None]
  - DIARRHOEA [None]
  - ECONOMIC PROBLEM [None]
  - ILL-DEFINED DISORDER [None]
  - INJURY [None]
  - WEIGHT DECREASED [None]
